FAERS Safety Report 13332739 (Version 1)
Quarter: 2017Q1

REPORT INFORMATION
  Report Type: Spontaneous
  Country: US (occurrence: US)
  Receive Date: 20170314
  Receipt Date: 20170314
  Transmission Date: 20170428
  Serious: Yes (Hospitalization)
  Sender: FDA-Public Use
  Company Number: None

PATIENT
  Age: 64 Year
  Sex: Male

DRUGS (1)
  1. ESBRIET [Suspect]
     Active Substance: PIRFENIDONE
     Indication: PULMONARY HYPERTENSION
     Dosage: 3 CAPSULES TID ORAL
     Route: 048
     Dates: start: 20161102

REACTIONS (6)
  - Urticaria [None]
  - Rash [None]
  - Pneumonia [None]
  - Pulmonary thrombosis [None]
  - Drug hypersensitivity [None]
  - Influenza [None]

NARRATIVE: CASE EVENT DATE: 20170226
